FAERS Safety Report 15924082 (Version 2)
Quarter: 2019Q1

REPORT INFORMATION
  Report Type: Report from Study
  Country: GB (occurrence: GB)
  Receive Date: 20190206
  Receipt Date: 20190212
  Transmission Date: 20190417
  Serious: Yes (Hospitalization)
  Sender: FDA-Public Use
  Company Number: GB-ROCHE-2255168

PATIENT
  Age: 77 Year
  Sex: Male

DRUGS (26)
  1. OBINUTUZUMAB. [Suspect]
     Active Substance: OBINUTUZUMAB
     Indication: CHRONIC LYMPHOCYTIC LEUKAEMIA
     Route: 042
     Dates: start: 20161025, end: 20161025
  2. ACP-196 [Suspect]
     Active Substance: ACALABRUTINIB
     Route: 048
     Dates: start: 20171121, end: 20171230
  3. ACP-196 [Suspect]
     Active Substance: ACALABRUTINIB
     Route: 048
     Dates: start: 20171231, end: 20180210
  4. ACP-196 [Suspect]
     Active Substance: ACALABRUTINIB
     Route: 048
     Dates: start: 20180406, end: 20180508
  5. ALLOPURINOL. [Concomitant]
     Active Substance: ALLOPURINOL
     Indication: PROPHYLAXIS
     Route: 065
     Dates: start: 20160926
  6. OBINUTUZUMAB. [Suspect]
     Active Substance: OBINUTUZUMAB
     Route: 042
     Dates: start: 20170314, end: 20170314
  7. ACP-196 [Suspect]
     Active Substance: ACALABRUTINIB
     Route: 048
     Dates: start: 20170510, end: 20170604
  8. ACP-196 [Suspect]
     Active Substance: ACALABRUTINIB
     Route: 048
     Dates: start: 20170605, end: 20170830
  9. SIMVASTATIN. [Concomitant]
     Active Substance: SIMVASTATIN
     Indication: DIABETES MELLITUS
     Route: 065
     Dates: start: 201606
  10. ACP-196 [Suspect]
     Active Substance: ACALABRUTINIB
     Indication: CHRONIC LYMPHOCYTIC LEUKAEMIA
     Route: 048
     Dates: start: 20160927, end: 20161122
  11. ACP-196 [Suspect]
     Active Substance: ACALABRUTINIB
     Route: 048
     Dates: start: 20170411, end: 20170509
  12. ACP-196 [Suspect]
     Active Substance: ACALABRUTINIB
     Route: 048
     Dates: start: 20170831, end: 20171120
  13. ACP-196 [Suspect]
     Active Substance: ACALABRUTINIB
     Route: 048
     Dates: start: 20190128
  14. ACP-196 [Suspect]
     Active Substance: ACALABRUTINIB
     Route: 048
     Dates: start: 20180731, end: 20181028
  15. RANITIDINE. [Concomitant]
     Active Substance: RANITIDINE
     Indication: PROPHYLAXIS
     Route: 065
     Dates: start: 20160926
  16. COTRIMOXAZOLE [Concomitant]
     Active Substance: SULFAMETHOXAZOLE\TRIMETHOPRIM
     Indication: ANTIBIOTIC PROPHYLAXIS
     Route: 065
     Dates: start: 20180511
  17. ACP-196 [Suspect]
     Active Substance: ACALABRUTINIB
     Route: 048
     Dates: start: 20170117, end: 20170213
  18. ACP-196 [Suspect]
     Active Substance: ACALABRUTINIB
     Route: 048
     Dates: start: 20170314, end: 20170410
  19. ACP-196 [Suspect]
     Active Substance: ACALABRUTINIB
     Route: 048
     Dates: start: 20180211, end: 20180403
  20. ACP-196 [Suspect]
     Active Substance: ACALABRUTINIB
     Route: 048
     Dates: start: 20181019, end: 20190116
  21. HUMAN INSULIN [Concomitant]
     Active Substance: INSULIN HUMAN
     Indication: DIABETES MELLITUS
     Route: 065
     Dates: start: 20160614
  22. ACP-196 [Suspect]
     Active Substance: ACALABRUTINIB
     Route: 048
     Dates: start: 20161124, end: 20170116
  23. ACP-196 [Suspect]
     Active Substance: ACALABRUTINIB
     Route: 048
     Dates: start: 20170214, end: 20170313
  24. ACP-196 [Suspect]
     Active Substance: ACALABRUTINIB
     Route: 048
     Dates: start: 20180511, end: 20180730
  25. SENNA [Concomitant]
     Active Substance: SENNA LEAF\SENNOSIDES\SENNOSIDES A AND B
     Indication: CONSTIPATION
     Route: 065
     Dates: start: 2015
  26. FOLIC ACID. [Concomitant]
     Active Substance: FOLIC ACID
     Indication: PROPHYLAXIS
     Route: 065
     Dates: start: 20170213

REACTIONS (1)
  - Rhinovirus infection [Not Recovered/Not Resolved]

NARRATIVE: CASE EVENT DATE: 20190128
